FAERS Safety Report 23986335 (Version 1)
Quarter: 2024Q2

REPORT INFORMATION
  Report Type: Spontaneous
  Country: US (occurrence: None)
  Receive Date: 20240618
  Receipt Date: 20240618
  Transmission Date: 20240716
  Serious: Yes (Hospitalization)
  Sender: FDA-Public Use
  Company Number: None

PATIENT
  Sex: Male

DRUGS (4)
  1. EVEROLIMUS [Suspect]
     Active Substance: EVEROLIMUS
     Indication: Metastasis
     Dosage: FREQUENCY : DAILY;?
     Route: 048
     Dates: start: 20231201
  2. EVEROLIMUS [Suspect]
     Active Substance: EVEROLIMUS
     Indication: Bone cancer
  3. EVEROLIMUS [Suspect]
     Active Substance: EVEROLIMUS
     Indication: Thyroid cancer
  4. PANTOPRAZOLE SODIUM [Concomitant]
     Active Substance: PANTOPRAZOLE SODIUM

REACTIONS (1)
  - Internal haemorrhage [None]
